FAERS Safety Report 6172632-4 (Version None)
Quarter: 2009Q2

REPORT INFORMATION
  Report Type: 
  Country: None (occurrence: None)
  Receive Date: 20090430
  Receipt Date: 20080212
  Transmission Date: 20091009
  Serious: No
  Sender: FDA-Public Use
  Company Number: CA-ELI_LILLY_AND_COMPANY-CA200802003486

PATIENT
  Sex: Male
  Weight: 92.4 kg

DRUGS (9)
  1. SOMATROPIN [Suspect]
     Indication: GROWTH HORMONE DEFICIENCY
     Dosage: 2.4 MG, UNK
     Route: 058
     Dates: start: 20040304, end: 20080101
  2. SOMATROPIN [Suspect]
     Dosage: UNK, UNK
     Dates: start: 20080401, end: 20080801
  3. LEVOTHYROXINE SODIUM [Concomitant]
     Indication: HYPOTHYROIDISM
     Dates: start: 20020101
  4. HYDROCORTISONE [Concomitant]
     Indication: ADRENAL INSUFFICIENCY
     Dates: start: 20050515
  5. DDAVP [Concomitant]
     Indication: DIABETES INSIPIDUS
     Dates: start: 20000417
  6. CALCIUM [Concomitant]
     Indication: BONE DEVELOPMENT ABNORMAL
     Dates: start: 20021203
  7. METFORMIN HCL [Concomitant]
     Indication: OBESITY
     Dates: start: 20050901
  8. DEXEDRINE [Concomitant]
     Indication: OBESITY
     Dates: start: 20020601
  9. ASPIRIN [Concomitant]
     Indication: VASCULITIS
     Dates: start: 20030601

REACTIONS (1)
  - ASTROCYTOMA [None]
